FAERS Safety Report 5700741-X (Version None)
Quarter: 2008Q2

REPORT INFORMATION
  Report Type: 
  Country: None (occurrence: None)
  Receive Date: 20080410
  Receipt Date: 20080218
  Transmission Date: 20081010
  Serious: No
  Sender: FDA-Public Use
  Company Number: A0710268A

PATIENT
  Age: 66 Year
  Sex: Female

DRUGS (4)
  1. TYKERB [Suspect]
     Indication: BREAST CANCER
     Dosage: 1250MG PER DAY
     Route: 048
     Dates: start: 20071101
  2. UNKNOWN MEDICATION [Suspect]
     Dates: start: 20080104
  3. FEMARA [Concomitant]
  4. VICODIN [Concomitant]

REACTIONS (4)
  - EYE IRRITATION [None]
  - EYE PRURITUS [None]
  - FOREIGN BODY SENSATION IN EYES [None]
  - OCULAR HYPERAEMIA [None]
